FAERS Safety Report 9114729 (Version 1)
Quarter: 2013Q1

REPORT INFORMATION
  Report Type: Spontaneous
  Country: NZ (occurrence: None)
  Receive Date: 20130128
  Receipt Date: 20130128
  Transmission Date: 20140127
  Serious: Yes (Other)
  Sender: FDA-Public Use
  Company Number: AG-2013-0084

PATIENT
  Age: 77 Year
  Sex: Male
  Weight: 64.5 kg

DRUGS (1)
  1. CHLORAMBUCIL (CHLORAMBUCIL) (UNKNOWN) [Suspect]
     Indication: CHRONIC LYMPHOCYTIC LEUKAEMIA
     Dosage: (DAY 1 + DAY 15)
     Dates: start: 20120319, end: 20120416

REACTIONS (1)
  - Squamous cell carcinoma [None]
